FAERS Safety Report 11381275 (Version 1)
Quarter: 2015Q3

REPORT INFORMATION
  Report Type: Spontaneous
  Country: US (occurrence: US)
  Receive Date: 20150814
  Receipt Date: 20150814
  Transmission Date: 20151125
  Serious: No
  Sender: FDA-Public Use
  Company Number: US-JNJFOC-20150713665

PATIENT
  Sex: Male
  Weight: 90.72 kg

DRUGS (7)
  1. ADDERALL [Concomitant]
     Active Substance: AMPHETAMINE ASPARTATE\AMPHETAMINE SULFATE\DEXTROAMPHETAMINE SACCHARATE\DEXTROAMPHETAMINE SULFATE
     Indication: ATTENTION DEFICIT/HYPERACTIVITY DISORDER
     Route: 048
     Dates: start: 2000
  2. ASPIRIN/CAFFEINE/ACETAMINOPHEN [Concomitant]
     Indication: HEADACHE
     Route: 048
  3. DURAGESIC [Suspect]
     Active Substance: FENTANYL
     Indication: NECK SURGERY
     Route: 062
     Dates: start: 201506
  4. OMEPRAZOLE. [Concomitant]
     Active Substance: OMEPRAZOLE
     Indication: ABDOMINAL DISCOMFORT
     Route: 048
  5. DURAGESIC [Suspect]
     Active Substance: FENTANYL
     Indication: NECK SURGERY
     Route: 062
     Dates: start: 201404, end: 201506
  6. DURAGESIC [Suspect]
     Active Substance: FENTANYL
     Indication: NECK SURGERY
     Route: 062
  7. DURAGESIC [Suspect]
     Active Substance: FENTANYL
     Indication: NECK SURGERY
     Route: 062

REACTIONS (7)
  - Product quality issue [Not Recovered/Not Resolved]
  - Drug effect decreased [Not Recovered/Not Resolved]
  - Feeling abnormal [Unknown]
  - Weight decreased [Not Recovered/Not Resolved]
  - Visual impairment [Not Recovered/Not Resolved]
  - Hyperhidrosis [Unknown]
  - Drug ineffective [Not Recovered/Not Resolved]
